FAERS Safety Report 5633744-4 (Version None)
Quarter: 2008Q1

REPORT INFORMATION
  Report Type: 
  Country: None (occurrence: None)
  Receive Date: 20080131
  Receipt Date: 20071115
  Transmission Date: 20080703
  Serious: No
  Sender: FDA-Public Use
  Company Number: 163-21880-07110989

PATIENT
  Age: 62 Year
  Sex: Female

DRUGS (1)
  1. REVLIMID [Suspect]
     Indication: DRUG USE FOR UNKNOWN INDICATION
     Dosage: 1 CAPSULE 3X A WEEK AS DIRECTED, ORAL
     Route: 048
     Dates: start: 20070730, end: 20071001

REACTIONS (2)
  - ABDOMINAL PAIN [None]
  - DIVERTICULITIS [None]
